FAERS Safety Report 12358157 (Version 1)
Quarter: 2016Q2

REPORT INFORMATION
  Report Type: Spontaneous
  Country: CA (occurrence: CA)
  Receive Date: 20160512
  Receipt Date: 20160512
  Transmission Date: 20160815
  Serious: Yes (Death, Other)
  Sender: FDA-Public Use
  Company Number: CA-009507513-1605CAN004460

PATIENT
  Age: 69 Year
  Sex: Male
  Weight: 75 kg

DRUGS (1)
  1. KEYTRUDA [Suspect]
     Active Substance: PEMBROLIZUMAB
     Indication: METASTATIC MALIGNANT MELANOMA
     Dosage: 150 MG (2MG/KG), Q3W
     Route: 042
     Dates: start: 20150817, end: 20160423

REACTIONS (3)
  - Death [Fatal]
  - Pulmonary embolism [Unknown]
  - Hepatic enzyme abnormal [Unknown]

NARRATIVE: CASE EVENT DATE: 20160423
